FAERS Safety Report 14737392 (Version 1)
Quarter: 2018Q2

REPORT INFORMATION
  Report Type: Report from Study
  Country: US (occurrence: US)
  Receive Date: 20180409
  Receipt Date: 20180409
  Transmission Date: 20180711
  Serious: No
  Sender: FDA-Public Use
  Company Number: US-AMGEN-USASL2018021088

PATIENT
  Age: 60 Year
  Sex: Female
  Weight: 60.77 kg

DRUGS (4)
  1. PROLIA [Suspect]
     Active Substance: DENOSUMAB
     Indication: BONE DISORDER
     Dosage: 60 MG, Q6MO
     Route: 058
  2. LEXAPRO [Concomitant]
     Active Substance: ESCITALOPRAM OXALATE
     Dosage: 5 MG, QD (AT BEDTIME)
     Route: 048
  3. FLU [Concomitant]
     Active Substance: INFLUENZA VIRUS VACCINE
     Dosage: UNK
     Dates: start: 20170930
  4. LETROZOLE. [Concomitant]
     Active Substance: LETROZOLE
     Dosage: 2.5 MG, QD
     Route: 048
     Dates: start: 201405

REACTIONS (7)
  - Chills [Unknown]
  - Depression [Unknown]
  - Osteopenia [Unknown]
  - Vulvovaginal dryness [Unknown]
  - Insomnia [Unknown]
  - Amenorrhoea [Unknown]
  - Off label use [Unknown]
